FAERS Safety Report 24823249 (Version 2)
Quarter: 2025Q3

REPORT INFORMATION
  Report Type: Report from Study
  Country: US (occurrence: US)
  Receive Date: 20250109
  Receipt Date: 20250803
  Transmission Date: 20251021
  Serious: Yes (Hospitalization, Other)
  Sender: ALEXION PHARMACEUTICALS
  Company Number: US-AstraZeneca-CH-00778267A

PATIENT
  Sex: Male

DRUGS (1)
  1. ULTOMIRIS [Suspect]
     Active Substance: RAVULIZUMAB-CWVZ
     Indication: Myasthenia gravis
     Dosage: UNK, Q8W
     Route: 065

REACTIONS (6)
  - Urosepsis [Unknown]
  - Urinary tract infection [Unknown]
  - Gait disturbance [Unknown]
  - Tremor [Unknown]
  - Asthenia [Unknown]
  - Depression [Unknown]
